FAERS Safety Report 9464940 (Version 5)
Quarter: 2013Q4

REPORT INFORMATION
  Report Type: Report from Study
  Country: US (occurrence: US)
  Receive Date: 20130819
  Receipt Date: 20131111
  Transmission Date: 20140711
  Serious: Yes (Hospitalization, Other)
  Sender: FDA-Public Use
  Company Number: PHHO2013US007692

PATIENT
  Age: 83 Year
  Sex: Female

DRUGS (10)
  1. SOM230 [Suspect]
     Indication: PANCREATIC CARCINOMA
     Dosage: 600 UG, BID
     Route: 058
     Dates: start: 20130605, end: 20130611
  2. DILTIAZEM [Concomitant]
     Dosage: 60 MG, UNK
  3. FENTANYL [Concomitant]
  4. ONDANSETRON [Concomitant]
  5. PANTOPRAZOLE [Concomitant]
     Dosage: 40 MG, UNK
  6. LORAZEPAM [Concomitant]
  7. METFORMIN [Concomitant]
     Dosage: 500 MG, UNK
  8. METOCLOPRAMIDE [Concomitant]
     Dosage: 10 MG, UNK
  9. METOPROLOL [Concomitant]
  10. NORMOSOL R [Concomitant]

REACTIONS (10)
  - Hyperglycaemia [Recovered/Resolved]
  - Vomiting [Recovered/Resolved]
  - Haemoptysis [Recovered/Resolved]
  - Diarrhoea [Recovered/Resolved]
  - Dyspnoea [Recovered/Resolved]
  - Lung infection [Recovered/Resolved]
  - Ventricular tachycardia [Recovered/Resolved]
  - Impaired gastric emptying [Recovered/Resolved]
  - Atrial fibrillation [Recovered/Resolved]
  - Amylase increased [Recovered/Resolved]
